FAERS Safety Report 7590003-0 (Version None)
Quarter: 2011Q3

REPORT INFORMATION
  Report Type: 
  Country: None (occurrence: None)
  Receive Date: 20110705
  Receipt Date: 20110628
  Transmission Date: 20111222
  Serious: Yes (Hospitalization)
  Sender: FDA-Public Use
  Company Number: A0931188A

PATIENT
  Sex: Male
  Weight: 84.5 kg

DRUGS (9)
  1. AZMACORT [Concomitant]
  2. FORADIL [Concomitant]
     Dates: start: 20060314
  3. SINGULAIR [Concomitant]
  4. CLARITIN [Concomitant]
  5. SEREVENT [Suspect]
     Indication: ASTHMA
     Dosage: 1PUFF TWICE PER DAY
     Route: 055
     Dates: end: 20060314
  6. PRILOSEC [Concomitant]
  7. LORAZEPAM [Concomitant]
  8. FLONASE [Concomitant]
  9. ALBUTEROL SULFATE AUTOHALER [Concomitant]

REACTIONS (2)
  - ACUTE RESPIRATORY FAILURE [None]
  - ASTHMA [None]
